FAERS Safety Report 5669586-3 (Version None)
Quarter: 2008Q1

REPORT INFORMATION
  Report Type: 
  Country: None (occurrence: None)
  Receive Date: 20080317
  Receipt Date: 20080314
  Transmission Date: 20080703
  Serious: Yes (Death, Hospitalization)
  Sender: FDA-Public Use
  Company Number: IE-BRISTOL-MYERS SQUIBB COMPANY-14051072

PATIENT
  Age: 61 Year
  Sex: Female

DRUGS (4)
  1. PACLITAXEL [Suspect]
     Indication: BREAST CANCER
     Route: 042
     Dates: start: 20071126, end: 20080114
  2. TRASTUZUMAB [Suspect]
     Indication: BREAST CANCER
     Dosage: ROUTE OF ADMINISTRATION-INTRAJOINT
     Route: 042
     Dates: start: 20071126, end: 20080114
  3. AMOXICILLIN + CLAVULANATE POTASSIUM [Concomitant]
     Dates: start: 20080114, end: 20080101
  4. CLARITHROMYCIN [Concomitant]
     Dates: start: 20080114, end: 20080114

REACTIONS (5)
  - ACUTE RESPIRATORY DISTRESS SYNDROME [None]
  - BLOOD MAGNESIUM DECREASED [None]
  - DEATH [None]
  - DYSPNOEA [None]
  - HAEMOGLOBIN DECREASED [None]
